FAERS Safety Report 9563444 (Version 2)
Quarter: 2013Q4

REPORT INFORMATION
  Report Type: Spontaneous
  Country: CA (occurrence: None)
  Receive Date: 20130926
  Receipt Date: 20131002
  Transmission Date: 20140711
  Serious: Yes (Other)
  Sender: FDA-Public Use
  Company Number: SYM-2013-10955

PATIENT
  Age: 65 Year
  Sex: Female

DRUGS (6)
  1. FLUOROURACIL [Suspect]
     Indication: BREAST CANCER STAGE I
  2. CYCLOPHOSPHAMIDE (CYCLOPHOSPHAMIDE) (CYCLOPHOSPHAMIDE) [Suspect]
     Indication: BREAST CANCER STAGE I
  3. CYCLOPHOSPHAMIDE (CYCLOPHOSPHAMIDE) (CYCLOPHOSPHAMIDE) [Suspect]
     Indication: OFF LABEL USE
  4. EXEMESTANE [Suspect]
     Indication: BREAST CANCER STAGE I
  5. METHOTREXATE (METHOTREXATE) (METHOTREXATE) [Suspect]
     Indication: BREAST CANCER STAGE I
  6. THERAPEUTIC RADIOPHARMACEUTICALS (THERAPEUTIC RADIOPHARMACEUTICALS) [Concomitant]

REACTIONS (6)
  - Cognitive disorder [None]
  - Off label use [None]
  - Memory impairment [None]
  - Disturbance in attention [None]
  - Disturbance in attention [None]
  - Executive dysfunction [None]
